FAERS Safety Report 11928378 (Version 1)
Quarter: 2016Q1

REPORT INFORMATION
  Report Type: Report from Study
  Country: US (occurrence: FI)
  Receive Date: 20160119
  Receipt Date: 20160119
  Transmission Date: 20160526
  Serious: Yes (Hospitalization)
  Sender: FDA-Public Use
  Company Number: FI-AKRON, INC.-1046614

PATIENT
  Age: 65 Year
  Sex: Male

DRUGS (9)
  1. PRIMASPAN [Concomitant]
     Active Substance: ASPIRIN
     Dates: start: 20080506
  2. MIRTAZAPINE. [Concomitant]
     Active Substance: MIRTAZAPINE
     Dates: start: 20080506
  3. TENOPRIN [Concomitant]
     Dates: start: 200712
  4. BECLONASAL FORTE AQUA [Concomitant]
     Dates: start: 2009
  5. ZIOPTAN [Suspect]
     Active Substance: TAFLUPROST
     Indication: GLAUCOMA
     Route: 047
     Dates: start: 20080226, end: 20080511
  6. ELOCON [Concomitant]
     Active Substance: MOMETASONE FUROATE
     Dates: start: 200701
  7. SOMAC [Concomitant]
     Active Substance: PANTOPRAZOLE SODIUM
     Dates: start: 2006
  8. BLOCANOL [Concomitant]
     Dates: start: 20080505, end: 20080508
  9. RAMIPRIL. [Concomitant]
     Active Substance: RAMIPRIL
     Dates: start: 2007

REACTIONS (1)
  - Abdominal pain [Unknown]

NARRATIVE: CASE EVENT DATE: 20080505
